FAERS Safety Report 21643012 (Version 3)
Quarter: 2023Q1

REPORT INFORMATION
  Report Type: Report from Study
  Country: CA (occurrence: CA)
  Receive Date: 20221125
  Receipt Date: 20230222
  Transmission Date: 20230417
  Serious: Yes (Hospitalization, Other)
  Sender: FDA-Public Use
  Company Number: CA-JNJFOC-20221152891

PATIENT
  Age: 72 Year
  Sex: Female
  Weight: 75 kg

DRUGS (2)
  1. REMICADE [Suspect]
     Active Substance: INFLIXIMAB
     Indication: Colitis ulcerative
     Dosage: INFUSION ON 26-OCT-2022?EXPIRY DATE: 22-NOV-2022
     Route: 041
     Dates: start: 20221006
  2. REMICADE [Suspect]
     Active Substance: INFLIXIMAB
     Indication: Crohn^s disease
     Route: 041
     Dates: end: 20221102

REACTIONS (5)
  - Syncope [Recovering/Resolving]
  - Heart rate increased [Recovering/Resolving]
  - Infusion related reaction [Recovering/Resolving]
  - Blood pressure decreased [Recovering/Resolving]
  - Hip surgery [Unknown]

NARRATIVE: CASE EVENT DATE: 20221122
